FAERS Safety Report 7128310-8 (Version None)
Quarter: 2010Q4

REPORT INFORMATION
  Report Type: 
  Country: None (occurrence: None)
  Receive Date: 20101130
  Receipt Date: 20101119
  Transmission Date: 20110411
  Serious: Yes (Hospitalization)
  Sender: FDA-Public Use
  Company Number: PHHY2010US68809

PATIENT
  Sex: Female
  Weight: 95.2 kg

DRUGS (1)
  1. ERL 080A ERL+TAB [Suspect]
     Indication: RENAL TRANSPLANT
     Dosage: 360 MG
     Route: 048
     Dates: start: 20100419

REACTIONS (8)
  - BLOOD CREATININE INCREASED [None]
  - CHRONIC ALLOGRAFT NEPHROPATHY [None]
  - CYTOMEGALOVIRUS VIRAEMIA [None]
  - HAEMODIALYSIS [None]
  - LEUKOPENIA [None]
  - NAUSEA [None]
  - THROMBOTIC MICROANGIOPATHY [None]
  - VOMITING [None]
